FAERS Safety Report 26190994 (Version 1)
Quarter: 2025Q4

REPORT INFORMATION
  Report Type: Spontaneous
  Country: US (occurrence: US)
  Receive Date: 20251223
  Receipt Date: 20251223
  Transmission Date: 20260118
  Serious: Yes (Other)
  Sender: LEO PHARM
  Company Number: US-LEO Pharma-385265

PATIENT
  Age: 73 Year
  Sex: Female

DRUGS (2)
  1. ADBRY [Suspect]
     Active Substance: TRALOKINUMAB-LDRM
     Indication: Eczema
     Dosage: 4 SYRINGES (600 MG) FOR THE LOADING DOSE
     Route: 058
     Dates: start: 2024, end: 2024
  2. ADBRY [Suspect]
     Active Substance: TRALOKINUMAB-LDRM
     Indication: Eczema
     Route: 058
     Dates: start: 2024

REACTIONS (2)
  - Cataract operation [Unknown]
  - Nausea [Recovering/Resolving]
